FAERS Safety Report 5590207-2 (Version None)
Quarter: 2008Q1

REPORT INFORMATION
  Report Type: 
  Country: None (occurrence: None)
  Receive Date: 20080114
  Receipt Date: 20080108
  Transmission Date: 20080703
  Serious: Yes (Other)
  Sender: FDA-Public Use
  Company Number: US-ASTRAZENECA-2008UW00576

PATIENT
  Age: 67 Year
  Sex: Female
  Weight: 77.1 kg

DRUGS (10)
  1. ARIMIDEX [Suspect]
     Indication: BREAST CANCER
     Route: 048
  2. MOBIC [Concomitant]
  3. PRILOSEC [Concomitant]
     Route: 048
  4. PAXIL [Concomitant]
  5. LISINOPRIL [Concomitant]
     Route: 048
  6. PLAQUENIL [Concomitant]
  7. FOSAMAX [Concomitant]
  8. CALCIUM [Concomitant]
  9. ATENOLOL [Concomitant]
     Route: 048
  10. CURCUMEN [Concomitant]

REACTIONS (4)
  - AGEUSIA [None]
  - FUNGAL INFECTION [None]
  - ORAL CANDIDIASIS [None]
  - RHEUMATOID ARTHRITIS [None]
